FAERS Safety Report 16968428 (Version 3)
Quarter: 2019Q4

REPORT INFORMATION
  Report Type: Spontaneous
  Country: US (occurrence: US)
  Receive Date: 20191029
  Receipt Date: 20191113
  Transmission Date: 20200122
  Serious: Yes (Hospitalization, Other)
  Sender: FDA-Public Use
  Company Number: US-AUROBINDO-AUR-APL-2019-067961

PATIENT
  Age: 8 Decade
  Sex: Male

DRUGS (6)
  1. METHYLPREDNISOLONE. [Suspect]
     Active Substance: METHYLPREDNISOLONE
     Dosage: 1 GRAM ON DAYS 3 AND 4, AND AGAIN ON DAY 8
     Route: 042
  2. PREDNISONE. [Concomitant]
     Active Substance: PREDNISONE
     Indication: PRODUCT USED FOR UNKNOWN INDICATION
     Dosage: UNK
     Route: 065
  3. METHYLPREDNISOLONE. [Suspect]
     Active Substance: METHYLPREDNISOLONE
     Dosage: 1 MILLIGRAM/KILOGRAM, ONCE A DAY (MAINTENANCE DOSE)
     Route: 065
  4. MYCOPHENOLATE MOFETIL. [Concomitant]
     Active Substance: MYCOPHENOLATE MOFETIL
     Indication: PRODUCT USED FOR UNKNOWN INDICATION
     Dosage: UNK
     Route: 065
  5. METHYLPREDNISOLONE. [Suspect]
     Active Substance: METHYLPREDNISOLONE
     Dosage: 1000 MILLIGRAM, ONCE A DAY  FOR AN ADDITIONAL 2 DAYS
     Route: 042
  6. METHYLPREDNISOLONE. [Suspect]
     Active Substance: METHYLPREDNISOLONE
     Indication: NEUROPSYCHIATRIC LUPUS
     Dosage: 100 MILLIGRAM, ONCE A DAY FOR 2 DAYS
     Route: 042

REACTIONS (5)
  - Depressed level of consciousness [Unknown]
  - Intention tremor [Unknown]
  - West Nile viral infection [Unknown]
  - Mental status changes [Recovered/Resolved]
  - Nuchal rigidity [Unknown]
